FAERS Safety Report 17516206 (Version 4)
Quarter: 2020Q3

REPORT INFORMATION
  Report Type: Spontaneous
  Country: US (occurrence: US)
  Receive Date: 20200309
  Receipt Date: 20200818
  Transmission Date: 20201102
  Serious: Yes (Other)
  Sender: FDA-Public Use
  Company Number: US-PFIZER INC-2020101733

PATIENT
  Age: 77 Year
  Sex: Female
  Weight: 57.79 kg

DRUGS (5)
  1. PREMARIN [Suspect]
     Active Substance: ESTROGENS, CONJUGATED
     Dosage: 0.9 MG, DAILY, (0.9 MG TOTAL)
     Route: 048
     Dates: start: 198106
  2. PREMARIN [Suspect]
     Active Substance: ESTROGENS, CONJUGATED
     Dosage: 0.9 MG, ALTERNATE DAY
     Dates: start: 202002
  3. LEVOTHYROXINE. [Concomitant]
     Active Substance: LEVOTHYROXINE
     Indication: HYPOTHYROIDISM
     Dosage: 100 UG, 1X/DAY (100MCG TABLET ONCE A DAY IN THE MORNING.)
     Dates: start: 2005
  4. PREMARIN [Suspect]
     Active Substance: ESTROGENS, CONJUGATED
     Indication: HYSTERECTOMY
     Dosage: 0.9 MG, 1X/DAY (0.9 MG TABLET BY MOUTH ONCE A DAY)
     Route: 048
     Dates: start: 1982
  5. PREMARIN [Suspect]
     Active Substance: ESTROGENS, CONJUGATED
     Dosage: 0.9 MG, (DOSAGE REDUCED IN 2006 TO 0.9 MG)
     Dates: start: 2006

REACTIONS (4)
  - Intentional product use issue [Unknown]
  - Hot flush [Unknown]
  - Therapeutic response unexpected [Unknown]
  - Body height decreased [Unknown]

NARRATIVE: CASE EVENT DATE: 2018
